FAERS Safety Report 9592518 (Version 1)
Quarter: 2013Q3

REPORT INFORMATION
  Report Type: Spontaneous
  Country: US (occurrence: None)
  Receive Date: 20130927
  Receipt Date: 20130927
  Transmission Date: 20140515
  Serious: Yes (Other)
  Sender: FDA-Public Use
  Company Number: CABO-13002869

PATIENT
  Age: 64 Year
  Sex: Male
  Weight: 90.9 kg

DRUGS (6)
  1. COMETRIQ [Suspect]
     Indication: RENAL CANCER
     Route: 048
     Dates: start: 20130611, end: 201306
  2. ADVAIR (FLUTICASONE PROTIONATE, SALMETEROL XINAFOATE) [Concomitant]
  3. ASPIRIN (ACETYLSALICYLIC ACID) [Concomitant]
  4. BENICAR (OLMESARTAN MEDOXOMIL) [Concomitant]
  5. ATENOLOL (ATENOLOL) [Concomitant]
  6. CLONIDINE (CLONIDINE) [Concomitant]

REACTIONS (2)
  - Flatulence [None]
  - Abdominal pain upper [None]
